FAERS Safety Report 21638390 (Version 2)
Quarter: 2022Q4

REPORT INFORMATION
  Report Type: Spontaneous
  Country: BE (occurrence: BE)
  Receive Date: 20221124
  Receipt Date: 20221221
  Transmission Date: 20230113
  Serious: Yes (Hospitalization)
  Sender: FDA-Public Use
  Company Number: BE-Accord-284988

PATIENT
  Age: 54 Year
  Sex: Female

DRUGS (17)
  1. BEVACIZUMAB [Suspect]
     Active Substance: BEVACIZUMAB
     Dosage: 15 MG/KG, EVERY 3 WEEKS
     Dates: start: 20221014
  2. CARBOPLATIN [Suspect]
     Active Substance: CARBOPLATIN
     Dosage: 5 UNK, 1 EVERY 3 WEEKS, SOLUTION FOR INFUSION
     Dates: start: 20221014
  3. PEMBROLIZUMAB [Suspect]
     Active Substance: PEMBROLIZUMAB
     Dosage: 200 MG, EVERY 3 WEEKS
     Dates: start: 20221014
  4. TISOTUMAB VEDOTIN [Suspect]
     Active Substance: TISOTUMAB VEDOTIN
     Dosage: 2 MG/KG, 1Q3WMONOTHERAPY ON DAY 1, 8, AND 15 OF EVERY 28-DAY CYCLE (3Q4W)
     Dates: start: 20221014
  5. DAFALGAN [Concomitant]
     Active Substance: ACETAMINOPHEN
     Dosage: UNK
     Dates: start: 2014
  6. MEDROL [Concomitant]
     Active Substance: METHYLPREDNISOLONE
     Dosage: UNK
     Dates: start: 20221015
  7. PERINDOPRIL ERBUMINE [Concomitant]
     Active Substance: PERINDOPRIL ERBUMINE
     Dosage: UNK
     Dates: start: 2020
  8. MICROLAX [MACROGOL;SODIUM CITRATE;SODIUM LAURYL SULFATE;SORBIC ACID] [Concomitant]
     Dates: start: 20221028, end: 20221028
  9. PALONOSETRON [Concomitant]
     Active Substance: PALONOSETRON
     Dates: start: 20221014
  10. ZYRTEC [Concomitant]
     Active Substance: CETIRIZINE HYDROCHLORIDE
     Dosage: UNK
     Dates: start: 20221024
  11. HUMAN RED BLOOD CELL [Concomitant]
     Active Substance: HUMAN RED BLOOD CELL
     Dates: start: 20221026, end: 20221026
  12. SOLU-MEDROL [Concomitant]
     Active Substance: METHYLPREDNISOLONE SODIUM SUCCINATE
     Dosage: UNK
     Dates: start: 20221014
  13. GLYCERIN\MINERAL OIL\PETROLATUM [Concomitant]
     Active Substance: GLYCERIN\MINERAL OIL\PETROLATUM
     Dosage: UNK
     Dates: start: 20221024
  14. FOSFOMYCIN TROMETHAMINE [Concomitant]
     Active Substance: FOSFOMYCIN TROMETHAMINE
     Dates: start: 20221021, end: 20221021
  15. HYALURONATE SODIUM\TREHALOSE [Concomitant]
     Active Substance: HYALURONATE SODIUM\TREHALOSE
     Dosage: ONGOING
     Dates: start: 20221014
  16. DIFLUCAN [Concomitant]
     Active Substance: FLUCONAZOLE
     Dates: start: 20221024, end: 20221024
  17. MOVICOL [Concomitant]
     Active Substance: POLYETHYLENE GLYCOL 3350\POTASSIUM CHLORIDE\SODIUM BICARBONATE\SODIUM CHLORIDE
     Dosage: ONGOING
     Dates: start: 20221028

REACTIONS (3)
  - Pyrexia [Not Recovered/Not Resolved]
  - Diarrhoea [Not Recovered/Not Resolved]
  - Viral infection [Recovered/Resolved]

NARRATIVE: CASE EVENT DATE: 20221021
